FAERS Safety Report 19237610 (Version 1)
Quarter: 2021Q2

REPORT INFORMATION
  Report Type: Spontaneous
  Country: US (occurrence: US)
  Receive Date: 20210510
  Receipt Date: 20210510
  Transmission Date: 20210717
  Serious: No
  Sender: FDA-Public Use
  Company Number: None

PATIENT
  Age: 73 Year
  Sex: Male
  Weight: 99.79 kg

DRUGS (4)
  1. SYNVISC?ONE [Suspect]
     Active Substance: HYLAN G-F 20
     Indication: RHEUMATOID ARTHRITIS
     Dosage: ?          OTHER FREQUENCY:INTRA?ARTICULARLY INTO EACH KNEE ONCE AS DIRECTED ;?
     Route: 014
     Dates: start: 202005
  2. ORENCIA [Suspect]
     Active Substance: ABATACEPT
     Indication: OSTEOARTHRITIS
     Route: 058
     Dates: start: 202006
  3. ORENCIA [Suspect]
     Active Substance: ABATACEPT
     Indication: RHEUMATOID ARTHRITIS
     Route: 058
     Dates: start: 202006
  4. SYNVISC?ONE [Suspect]
     Active Substance: HYLAN G-F 20
     Indication: OSTEOARTHRITIS

REACTIONS (2)
  - Bladder operation [None]
  - Prostatic operation [None]
